FAERS Safety Report 25374572 (Version 1)
Quarter: 2025Q2

REPORT INFORMATION
  Report Type: Spontaneous
  Country: FR (occurrence: FR)
  Receive Date: 20250529
  Receipt Date: 20250529
  Transmission Date: 20250717
  Serious: Yes (Hospitalization, Other)
  Sender: PFIZER
  Company Number: None

PATIENT
  Age: 73 Year

DRUGS (7)
  1. GEMCITABINE HYDROCHLORIDE [Suspect]
     Active Substance: GEMCITABINE HYDROCHLORIDE
     Indication: Cholangiocarcinoma
     Route: 042
     Dates: start: 20240826, end: 20250219
  2. CISPLATIN [Suspect]
     Active Substance: CISPLATIN
     Indication: Cholangiocarcinoma
     Route: 042
     Dates: start: 20240826, end: 20250219
  3. DURVALUMAB [Suspect]
     Active Substance: DURVALUMAB
     Indication: Cholangiocarcinoma
     Route: 042
     Dates: start: 20240826
  4. METFORMIN HYDROCHLORIDE [Concomitant]
     Active Substance: METFORMIN HYDROCHLORIDE
  5. ATORVASTATIN [Concomitant]
     Active Substance: ATORVASTATIN
  6. FUROSEMIDE [Concomitant]
     Active Substance: FUROSEMIDE
  7. POTASSIUM CHLORIDE [Concomitant]
     Active Substance: POTASSIUM CHLORIDE

REACTIONS (2)
  - Extremity necrosis [Not Recovered/Not Resolved]
  - Off label use [Unknown]

NARRATIVE: CASE EVENT DATE: 20241201
